FAERS Safety Report 26199409 (Version 1)
Quarter: 2025Q4

REPORT INFORMATION
  Report Type: Spontaneous
  Country: US (occurrence: US)
  Receive Date: 20251225
  Receipt Date: 20251225
  Transmission Date: 20260119
  Serious: Yes (Life-Threatening, Hospitalization)
  Sender: TEVA
  Company Number: US-TEVA-VS-3406059

PATIENT
  Age: 23 Year
  Sex: Male

DRUGS (1)
  1. VERAPAMIL [Suspect]
     Active Substance: VERAPAMIL HYDROCHLORIDE
     Indication: Intentional overdose
     Dosage: EXTENDED-RELEASE
     Route: 065

REACTIONS (11)
  - Hypotension [Recovered/Resolved]
  - Renal failure [Recovered/Resolved]
  - Acute respiratory distress syndrome [Recovered/Resolved]
  - Intentional overdose [Unknown]
  - Bradycardia [Recovered/Resolved]
  - Acute kidney injury [Recovered/Resolved]
  - Nodal rhythm [Recovered/Resolved]
  - Electrocardiogram QT prolonged [Recovered/Resolved]
  - Respiratory failure [Recovered/Resolved]
  - Shock [Recovered/Resolved]
  - Bundle branch block left [Recovered/Resolved]
